FAERS Safety Report 23563265 (Version 1)
Quarter: 2024Q1

REPORT INFORMATION
  Report Type: Spontaneous
  Country: US (occurrence: US)
  Receive Date: 20240226
  Receipt Date: 20240226
  Transmission Date: 20240409
  Serious: No
  Sender: FDA-Public Use
  Company Number: US-SA-SAC20240222000134

PATIENT
  Age: 10 Year
  Sex: Female
  Weight: 33 kg

DRUGS (1)
  1. DUPIXENT [Suspect]
     Active Substance: DUPILUMAB
     Indication: Product used for unknown indication
     Dosage: 200 MG, QOW
     Route: 058

REACTIONS (4)
  - Abdominal pain [Recovered/Resolved]
  - Constipation [Unknown]
  - White blood cell count increased [Unknown]
  - Injection site pain [Recovering/Resolving]

NARRATIVE: CASE EVENT DATE: 20230201
